FAERS Safety Report 6545972-4 (Version None)
Quarter: 2010Q1

REPORT INFORMATION
  Report Type: 
  Country: None (occurrence: None)
  Receive Date: 20100121
  Receipt Date: 20100121
  Transmission Date: 20100710
  Serious: Yes (Other)
  Sender: FDA-Public Use
  Company Number: None

PATIENT
  Sex: Female
  Weight: 45.3597 kg

DRUGS (8)
  1. MOTRIN IB [Suspect]
     Indication: DYSMENORRHOEA
     Dosage: 400MG AS NEEDED PO
     Route: 048
     Dates: start: 20091006, end: 20091124
  2. MOTRIN IB [Suspect]
     Indication: HEADACHE
     Dosage: 400MG AS NEEDED PO
     Route: 048
     Dates: start: 20091006, end: 20091124
  3. MOTRIN IB [Suspect]
     Indication: PAIN MANAGEMENT
     Dosage: 400MG AS NEEDED PO
     Route: 048
     Dates: start: 20091006, end: 20091124
  4. MOTRIN IB [Suspect]
     Indication: PYREXIA
     Dosage: 400MG AS NEEDED PO
     Route: 048
     Dates: start: 20091006, end: 20091124
  5. TYLENOL [Suspect]
     Indication: DYSMENORRHOEA
     Dosage: 500 MG AS NEEDED PO
     Route: 048
     Dates: start: 20091125, end: 20100116
  6. TYLENOL [Suspect]
     Indication: HEADACHE
     Dosage: 500 MG AS NEEDED PO
     Route: 048
     Dates: start: 20091125, end: 20100116
  7. TYLENOL [Suspect]
     Indication: PAIN MANAGEMENT
     Dosage: 500 MG AS NEEDED PO
     Route: 048
     Dates: start: 20091125, end: 20100116
  8. TYLENOL [Suspect]
     Indication: PYREXIA
     Dosage: 500 MG AS NEEDED PO
     Route: 048
     Dates: start: 20091125, end: 20100116

REACTIONS (8)
  - ABDOMINAL DISCOMFORT [None]
  - ANXIETY [None]
  - NAUSEA [None]
  - PAIN [None]
  - PRODUCT QUALITY ISSUE [None]
  - RETCHING [None]
  - ULCER [None]
  - VOMITING [None]
